FAERS Safety Report 4439607-4 (Version None)
Quarter: 2004Q3

REPORT INFORMATION
  Report Type: 
  Country: None (occurrence: None)
  Receive Date: 20040902
  Receipt Date: 20040823
  Transmission Date: 20050211
  Serious: Yes (Other)
  Sender: FDA-Public Use
  Company Number: CH-BRISTOL-MYERS SQUIBB COMPANY-12684429

PATIENT

DRUGS (4)
  1. STOCRIN CAPS [Suspect]
     Indication: HIV INFECTION
     Route: 048
     Dates: start: 20030401, end: 20040801
  2. VIREAD [Suspect]
     Indication: HIV INFECTION
     Route: 048
     Dates: start: 20040401, end: 20040801
  3. COMBIVIR [Concomitant]
     Indication: HIV INFECTION
     Dates: start: 20030401, end: 20040401
  4. LAMIVUDINE [Concomitant]
     Indication: HIV INFECTION
     Dates: start: 20040401, end: 20040801

REACTIONS (2)
  - NEUTROPENIA [None]
  - RHABDOMYOLYSIS [None]
